FAERS Safety Report 22277880 (Version 2)
Quarter: 2023Q2

REPORT INFORMATION
  Report Type: Report from Study
  Country: IT (occurrence: IT)
  Receive Date: 20230503
  Receipt Date: 20230509
  Transmission Date: 20230722
  Serious: Yes (Hospitalization)
  Sender: FDA-Public Use
  Company Number: None

PATIENT
  Age: 31 Year
  Sex: Female

DRUGS (4)
  1. RITONAVIR [Suspect]
     Active Substance: RITONAVIR
     Indication: Antiviral prophylaxis
     Dosage: DOSAGE: 100?UNIT OF MEASURE: MILLIGRAMS?FREQUENCY OF ADMINISTRATION: DAILY?ROUTE OF ADMINISTRATIO...
     Route: 048
     Dates: start: 20221128, end: 20221202
  2. DARUNAVIR [Suspect]
     Active Substance: DARUNAVIR
     Indication: Antiviral prophylaxis
     Dosage: DOSAGE: 800?UNIT OF MEASURE: MILLIGRAMS?FREQUENCY OF ADMINISTRATION: DAILY?ROUTE OF ADMINISTRATIO...
     Route: 048
     Dates: start: 20221128, end: 20221202
  3. LEVOTHYROXINE SODIUM [Concomitant]
     Active Substance: LEVOTHYROXINE SODIUM
     Indication: Product used for unknown indication
  4. TRUVADA [Suspect]
     Active Substance: EMTRICITABINE\TENOFOVIR DISOPROXIL FUMARATE
     Indication: Antiviral prophylaxis
     Dosage: DOSAGE: 445?UNIT OF MEASURE: MILLIGRAMS?FREQUENCY OF ADMINISTRATION: DAILY?ROUTE OF ADMINISTRATIO...
     Route: 048
     Dates: start: 20221128, end: 20221202

REACTIONS (2)
  - Urticaria [Recovered/Resolved]
  - Drug hypersensitivity [Recovered/Resolved]

NARRATIVE: CASE EVENT DATE: 20221202
